FAERS Safety Report 18147671 (Version 1)
Quarter: 2020Q3

REPORT INFORMATION
  Report Type: Spontaneous
  Country: US (occurrence: US)
  Receive Date: 20200813
  Receipt Date: 20200813
  Transmission Date: 20201103
  Serious: No
  Sender: FDA-Public Use
  Company Number: US-TEVA-2020-US-1815554

PATIENT

DRUGS (4)
  1. MODAFINIL. [Suspect]
     Active Substance: MODAFINIL
     Dosage: DOSE: 1 TABLET OF 200MG
     Route: 065
  2. MODAFINIL. [Suspect]
     Active Substance: MODAFINIL
     Indication: SLEEP DISORDER
     Dosage: DOSE: 2 TABLET 200MG ALWAYS BEFORE 7AM
     Route: 065
  3. CLONAZEPAM. [Concomitant]
     Active Substance: CLONAZEPAM
     Indication: SLEEP DISORDER
     Route: 065
  4. MODAFINIL. [Suspect]
     Active Substance: MODAFINIL
     Dosage: DOSE: 1/2 TABLET OF 200MG
     Route: 065

REACTIONS (2)
  - Therapeutic product effect incomplete [Unknown]
  - Treatment noncompliance [Unknown]
